FAERS Safety Report 6072049-7 (Version None)
Quarter: 2009Q1

REPORT INFORMATION
  Report Type: 
  Country: None (occurrence: None)
  Receive Date: 20090205
  Receipt Date: 20090205
  Transmission Date: 20090719
  Serious: Yes (Hospitalization, Other)
  Sender: FDA-Public Use
  Company Number: None

PATIENT
  Sex: Male
  Weight: 125.1928 kg

DRUGS (1)
  1. MAGNEVIST [Suspect]
     Indication: NUCLEAR MAGNETIC RESONANCE IMAGING
     Dates: start: 20090129, end: 20090129

REACTIONS (7)
  - CHEST PAIN [None]
  - FACIAL PAIN [None]
  - INJECTION SITE PAIN [None]
  - MALAISE [None]
  - PAIN IN EXTREMITY [None]
  - POLYDIPSIA [None]
  - URINE OUTPUT DECREASED [None]
